FAERS Safety Report 6300113-3 (Version None)
Quarter: 2009Q3

REPORT INFORMATION
  Report Type: 
  Country: None (occurrence: None)
  Receive Date: 20090805
  Receipt Date: 20090805
  Transmission Date: 20100115
  Serious: Yes (Life-Threatening, Other)
  Sender: FDA-Public Use
  Company Number: None

PATIENT
  Age: 36 Year
  Sex: Female
  Weight: 46.7205 kg

DRUGS (4)
  1. LEVOTHYROXINE SODIUM [Suspect]
     Indication: HYPOTHYROIDISM
     Dosage: 1 TABLET 1 PER MORNING PO LAST MARCH-PRESENT
     Route: 048
  2. ALPHA LIPOIC ACID [Suspect]
     Indication: ANTIOXIDANT THERAPY
     Dosage: 1 TABLET 1 PER DAY PO LAST YEAR-LAST WEEK
     Route: 048
  3. ALPHA LIPOIC ACID [Suspect]
     Indication: NEOPLASM MALIGNANT
     Dosage: 1 TABLET 1 PER DAY PO LAST YEAR-LAST WEEK
     Route: 048
  4. ALPHA LIPOIC ACID [Suspect]
     Indication: PROPHYLAXIS
     Dosage: 1 TABLET 1 PER DAY PO LAST YEAR-LAST WEEK
     Route: 048

REACTIONS (15)
  - ALOPECIA [None]
  - ARRHYTHMIA [None]
  - CHEST PAIN [None]
  - COLD SWEAT [None]
  - DISTURBANCE IN ATTENTION [None]
  - DRUG INTERACTION [None]
  - DRY SKIN [None]
  - FATIGUE [None]
  - FEELING ABNORMAL [None]
  - IMPAIRED WORK ABILITY [None]
  - INSOMNIA [None]
  - PERIPHERAL COLDNESS [None]
  - STRESS [None]
  - UNDERWEIGHT [None]
  - WEIGHT DECREASED [None]
